FAERS Safety Report 5699683-8 (Version None)
Quarter: 2008Q2

REPORT INFORMATION
  Report Type: 
  Country: None (occurrence: None)
  Receive Date: 20080410
  Receipt Date: 20080402
  Transmission Date: 20081010
  Serious: Yes (Hospitalization)
  Sender: FDA-Public Use
  Company Number: PHBS2007VE12917

PATIENT
  Age: 23 Year
  Sex: Female

DRUGS (8)
  1. TRILEPTAL [Suspect]
     Indication: AFFECT LABILITY
     Dosage: 300 MG/DAY
     Route: 048
     Dates: start: 20070411
  2. TRILEPTAL [Suspect]
     Dosage: 900 MG/DAY
     Route: 048
     Dates: start: 20070327
  3. TRILEPTAL [Suspect]
     Dosage: 600 MG/DAY
     Route: 048
     Dates: start: 20070412
  4. RISPERIDONE [Concomitant]
     Dosage: 2 MG/DAY
     Route: 048
     Dates: start: 20070424
  5. RISPERIDONE [Concomitant]
     Dosage: 3 MG/DAY
     Route: 048
     Dates: start: 20070427
  6. RISPERIDONE [Concomitant]
     Dosage: 1 MG/DAY
     Route: 048
     Dates: start: 20070418
  7. EFFEXOR [Concomitant]
     Dosage: 75 MG/DAY
     Route: 048
     Dates: start: 20070409
  8. RIVOTRIL [Concomitant]
     Dosage: 2 MG/DAY
     Route: 048
     Dates: start: 20070409

REACTIONS (4)
  - NEUTROPENIA [None]
  - PLEURAL EFFUSION [None]
  - SPLENOMEGALY [None]
  - WHITE BLOOD CELL COUNT DECREASED [None]
